FAERS Safety Report 16514838 (Version 1)
Quarter: 2019Q3

REPORT INFORMATION
  Report Type: Spontaneous
  Country: US (occurrence: US)
  Receive Date: 20190702
  Receipt Date: 20190702
  Transmission Date: 20191004
  Serious: No
  Sender: FDA-Public Use
  Company Number: US-PFIZER INC-2019269040

PATIENT
  Sex: Female

DRUGS (2)
  1. DOXYCYCLINE HYCLATE. [Suspect]
     Active Substance: DOXYCYCLINE HYCLATE
     Dosage: 1 DF, 2X/DAY
     Route: 048
  2. DOXYCYCLINE HYCLATE. [Suspect]
     Active Substance: DOXYCYCLINE HYCLATE
     Dosage: 2 DF, 1X/DAY (EVENING ON WEDNESDAY SHE TOOK 2 CAPSULES)
     Route: 048
     Dates: start: 20190619

REACTIONS (6)
  - Oropharyngeal pain [Unknown]
  - Nasal congestion [Unknown]
  - Product use issue [Unknown]
  - Off label use [Unknown]
  - Headache [Unknown]
  - Extra dose administered [Unknown]

NARRATIVE: CASE EVENT DATE: 20190619
